FAERS Safety Report 6729564-X (Version None)
Quarter: 2010Q2

REPORT INFORMATION
  Report Type: 
  Country: None (occurrence: None)
  Receive Date: 20100518
  Receipt Date: 20100510
  Transmission Date: 20101027
  Serious: Yes (Hospitalization)
  Sender: FDA-Public Use
  Company Number: US-BIOGENIDEC-2010BI015285

PATIENT
  Age: 46 Year
  Sex: Male
  Weight: 70 kg

DRUGS (2)
  1. AVONEX [Suspect]
     Indication: MULTIPLE SCLEROSIS
     Route: 030
     Dates: start: 19990726, end: 20030801
  2. AVONEX [Suspect]
     Route: 030
     Dates: start: 20030901

REACTIONS (9)
  - CONVULSION [None]
  - FATIGUE [None]
  - HYPERSENSITIVITY [None]
  - HYPOAESTHESIA [None]
  - MULTIPLE SCLEROSIS RELAPSE [None]
  - NERVOUS SYSTEM DISORDER [None]
  - SENSORY LOSS [None]
  - URINARY INCONTINENCE [None]
  - WEIGHT INCREASED [None]
